FAERS Safety Report 5349813-2 (Version None)
Quarter: 2007Q2

REPORT INFORMATION
  Report Type: 
  Country: None (occurrence: None)
  Receive Date: 20070607
  Receipt Date: 20070528
  Transmission Date: 20071010
  Serious: Yes (Other)
  Sender: FDA-Public Use
  Company Number: AR-PFIZER INC-2007030408

PATIENT
  Age: 58 Year
  Sex: Male

DRUGS (1)
  1. SUTENT [Suspect]
     Indication: RENAL CANCER METASTATIC
     Dosage: DAILY DOSE:50MG
     Route: 048
     Dates: end: 20070401

REACTIONS (5)
  - DEPRESSION [None]
  - FALL [None]
  - MOBILITY DECREASED [None]
  - MUSCULAR WEAKNESS [None]
  - PARAESTHESIA [None]
